FAERS Safety Report 4569144-8 (Version None)
Quarter: 2005Q1

REPORT INFORMATION
  Report Type: 
  Country: None (occurrence: None)
  Receive Date: 20050203
  Receipt Date: 20050121
  Transmission Date: 20050727
  Serious: Yes (Other)
  Sender: FDA-Public Use
  Company Number: NLWYE333212JAN05

PATIENT
  Sex: Male
  Weight: 82 kg

DRUGS (2)
  1. ENBREL [Suspect]
     Indication: PSORIATIC ARTHROPATHY
     Route: 058
     Dates: start: 20041212
  2. SULFASALAZINE [Concomitant]
     Indication: PSORIATIC ARTHROPATHY
     Dosage: 2 TIMES 1000 MG
     Dates: start: 20010411, end: 20050112

REACTIONS (3)
  - ERYTHEMA [None]
  - FACIAL PAIN [None]
  - TOXIC SKIN ERUPTION [None]
